FAERS Safety Report 7604145-4 (Version None)
Quarter: 2011Q3

REPORT INFORMATION
  Report Type: 
  Country: None (occurrence: None)
  Receive Date: 20110701
  Receipt Date: 20110620
  Transmission Date: 20111222
  Serious: Yes (Other)
  Sender: FDA-Public Use
  Company Number: IDA-00557

PATIENT
  Age: 51 Year
  Sex: Female

DRUGS (1)
  1. PROPRANOLOL [Suspect]

REACTIONS (11)
  - PANIC ATTACK [None]
  - DEPRESSION [None]
  - HYPOTENSION [None]
  - CHEST PAIN [None]
  - ANAESTHETIC COMPLICATION [None]
  - SUPRAVENTRICULAR TACHYCARDIA [None]
  - HYPERTENSION [None]
  - TREMOR [None]
  - GENERALISED ANXIETY DISORDER [None]
  - MIGRAINE [None]
  - PHAEOCHROMOCYTOMA [None]
